FAERS Safety Report 7954636-1 (Version None)
Quarter: 2011Q4

REPORT INFORMATION
  Report Type: 
  Country: None (occurrence: None)
  Receive Date: 20111202
  Receipt Date: 20111129
  Transmission Date: 20120403
  Serious: Yes (Death, Hospitalization, Other)
  Sender: FDA-Public Use
  Company Number: PHHY2011JP51685

PATIENT
  Sex: Female
  Weight: 48 kg

DRUGS (12)
  1. ALISKIREN [Suspect]
     Indication: HYPERTENSION
     Dosage: 150 MG, UNK
     Route: 048
     Dates: start: 20100118
  2. AVAPRO [Concomitant]
     Indication: HYPERTENSION
     Dosage: 100 MG, UNK
     Route: 048
     Dates: start: 20090413
  3. LASIX [Concomitant]
     Dosage: 20 MG, UNK
     Route: 048
     Dates: start: 20060408
  4. ALLOPURINOL [Concomitant]
     Dosage: 100 MG, UNK
     Route: 048
     Dates: start: 20070416
  5. DIGOXIN [Concomitant]
     Dosage: 0.125 MG, UNK
     Route: 048
     Dates: start: 20060403
  6. RISEDRONATE SODIUM [Concomitant]
     Dosage: 17.5 MG, UNK
     Route: 048
     Dates: start: 20090706
  7. WARFARIN SODIUM [Concomitant]
     Dosage: 1.125 MG, UNK
     Route: 048
     Dates: start: 20070419
  8. AVAPRO [Concomitant]
     Dosage: 200 MG, UNK
     Route: 048
  9. MOBIC [Concomitant]
     Dosage: 5 MG, UNK
     Route: 048
     Dates: start: 20080709
  10. AMLODIPINE [Concomitant]
     Indication: HYPERTENSION
     Dosage: 2.5 MG, UNK
     Route: 048
     Dates: start: 20091130
  11. LANSOPRAZOLE [Concomitant]
     Dosage: 15 MG, UNK
     Route: 048
     Dates: start: 20090511
  12. MAGNESIUM OXIDE [Concomitant]
     Dosage: 1.67 G, UNK
     Route: 048
     Dates: start: 20070507

REACTIONS (4)
  - DECREASED APPETITE [None]
  - BLOOD PRESSURE DIASTOLIC DECREASED [None]
  - DEATH [None]
  - DEHYDRATION [None]
